FAERS Safety Report 13130418 (Version 3)
Quarter: 2017Q1

REPORT INFORMATION
  Report Type: Report from Study
  Country: KR (occurrence: KR)
  Receive Date: 20170119
  Receipt Date: 20170221
  Transmission Date: 20170428
  Serious: Yes (Hospitalization)
  Sender: FDA-Public Use
  Company Number: KR-PFIZER INC-2017017688

PATIENT
  Age: 47 Year
  Sex: Male
  Weight: 63 kg

DRUGS (3)
  1. MSB0010718C [Suspect]
     Active Substance: AVELUMAB
     Indication: OESOPHAGEAL ADENOCARCINOMA
     Dosage: 655 MG, UNK
     Route: 042
     Dates: start: 20161028, end: 20161222
  2. OXALIPLATIN. [Suspect]
     Active Substance: OXALIPLATIN
     Indication: OESOPHAGEAL ADENOCARCINOMA
     Dosage: 228 MG, UNK
     Route: 042
     Dates: start: 20160727, end: 20160913
  3. CAPECITABINE. [Suspect]
     Active Substance: CAPECITABINE
     Indication: OESOPHAGEAL ADENOCARCINOMA
     Dosage: 1750 MG, UNK
     Route: 048
     Dates: start: 20160727, end: 20160927

REACTIONS (1)
  - Pleural effusion [Not Recovered/Not Resolved]

NARRATIVE: CASE EVENT DATE: 20161208
